FAERS Safety Report 8989858 (Version 9)
Quarter: 2014Q1

REPORT INFORMATION
  Report Type: Spontaneous
  Country: US (occurrence: US)
  Receive Date: 20121228
  Receipt Date: 20140113
  Transmission Date: 20141002
  Serious: Yes (Hospitalization)
  Sender: FDA-Public Use
  Company Number: US-GLAXOSMITHKLINE-A1006501A

PATIENT
  Age: 60 Year
  Sex: Female
  Weight: 96 kg

DRUGS (3)
  1. FLOLAN [Suspect]
     Indication: PULMONARY ARTERIAL HYPERTENSION
     Dosage: 24.3NGKM CONTINUOUS
     Route: 042
     Dates: start: 20020606
  2. COUMADIN [Concomitant]
  3. REVATIO [Concomitant]

REACTIONS (8)
  - Medical device complication [Recovered/Resolved]
  - Thrombosis [Recovered/Resolved]
  - Blood pressure decreased [Recovered/Resolved]
  - Upper respiratory tract infection [Recovered/Resolved]
  - Dizziness [Recovered/Resolved]
  - Infusion site pain [Recovered/Resolved]
  - Infusion site swelling [Recovered/Resolved]
  - Presyncope [Recovered/Resolved]
